FAERS Safety Report 10530981 (Version 1)
Quarter: 2014Q4

REPORT INFORMATION
  Report Type: Spontaneous
  Country: ZA (occurrence: ZA)
  Receive Date: 20141021
  Receipt Date: 20141021
  Transmission Date: 20150528
  Serious: Yes (Death)
  Sender: FDA-Public Use
  Company Number: ZA-SA-2014SA143581

PATIENT
  Age: 60 Year
  Sex: Female

DRUGS (1)
  1. RENAGEL [Suspect]
     Active Substance: SEVELAMER HYDROCHLORIDE
     Indication: CHRONIC KIDNEY DISEASE
     Dosage: RENAGEL 1600MG TDS
     Route: 048
     Dates: start: 201205, end: 20131212

REACTIONS (1)
  - Death [Fatal]

NARRATIVE: CASE EVENT DATE: 20131212
